FAERS Safety Report 8888839 (Version 1)
Quarter: 2012Q4

REPORT INFORMATION
  Report Type: 
  Country: US (occurrence: US)
  Receive Date: 20121106
  Receipt Date: 20121106
  Transmission Date: 20130627
  Serious: No
  Sender: FDA-Public Use
  Company Number: US-009507513-1211USA000615

PATIENT
  Sex: Female

DRUGS (8)
  1. VICTRELIS [Suspect]
     Dosage: 4 DF, q8h
     Route: 048
     Dates: start: 20120929
  2. RIBAVIRIN (WARRICK) [Suspect]
  3. PEGASYS [Suspect]
  4. METOPROLOL [Concomitant]
     Dosage: 100 mg, UNK
     Route: 048
  5. CITALOPRAM [Concomitant]
     Dosage: 20 mg, UNK
     Route: 048
  6. ATIVAN [Concomitant]
     Dosage: 1 mg, UNK
     Route: 048
  7. COMBIPATCH [Concomitant]
     Dosage: 0.05/0.14 UNK
     Route: 062
  8. PANTOPRAZOLE [Concomitant]
     Dosage: 20 mg, UNK
     Route: 048

REACTIONS (4)
  - Red blood cell count decreased [Unknown]
  - Dizziness [Unknown]
  - Decreased appetite [Unknown]
  - Nausea [Unknown]
